FAERS Safety Report 20659089 (Version 7)
Quarter: 2022Q4

REPORT INFORMATION
  Report Type: Report from Study
  Country: FR (occurrence: FR)
  Receive Date: 20220331
  Receipt Date: 20221229
  Transmission Date: 20230112
  Serious: Yes (Hospitalization, Other)
  Sender: FDA-Public Use
  Company Number: FR-GILEAD-2022-0574818

PATIENT
  Sex: Female
  Weight: 82 kg

DRUGS (10)
  1. SACITUZUMAB GOVITECAN-HZIY [Suspect]
     Active Substance: SACITUZUMAB GOVITECAN-HZIY
     Indication: Triple negative breast cancer
     Dosage: 7 MG/KG
     Route: 042
     Dates: start: 20211227, end: 20220307
  2. SACITUZUMAB GOVITECAN-HZIY [Suspect]
     Active Substance: SACITUZUMAB GOVITECAN-HZIY
     Dosage: 10 MG/KG
     Route: 042
     Dates: start: 20211201, end: 20211208
  3. SACITUZUMAB GOVITECAN-HZIY [Suspect]
     Active Substance: SACITUZUMAB GOVITECAN-HZIY
     Dosage: 10 MG/KG, CYCLE 8
     Route: 042
     Dates: start: 20220503, end: 20220510
  4. SACITUZUMAB GOVITECAN-HZIY [Suspect]
     Active Substance: SACITUZUMAB GOVITECAN-HZIY
     Dosage: 6.5 MG/KG, CYCLE 7
     Route: 042
     Dates: start: 20220411, end: 20220419
  5. SACITUZUMAB GOVITECAN-HZIY [Suspect]
     Active Substance: SACITUZUMAB GOVITECAN-HZIY
     Dosage: 6.5 MG/KG, CYCLE 6
     Route: 042
     Dates: start: 20220321, end: 20220328
  6. SACITUZUMAB GOVITECAN-HZIY [Suspect]
     Active Substance: SACITUZUMAB GOVITECAN-HZIY
     Dosage: UNK, CYCLE 9
     Route: 042
     Dates: start: 20220524, end: 20220530
  7. SACITUZUMAB GOVITECAN-HZIY [Suspect]
     Active Substance: SACITUZUMAB GOVITECAN-HZIY
     Dosage: 6.5 MG/KG CYCLE 10
     Route: 042
     Dates: start: 20220613, end: 20220620
  8. SACITUZUMAB GOVITECAN-HZIY [Suspect]
     Active Substance: SACITUZUMAB GOVITECAN-HZIY
     Dosage: 6.5 MG/KG, CYCLE 11
     Route: 042
     Dates: start: 20220712, end: 20220721
  9. SACITUZUMAB GOVITECAN-HZIY [Suspect]
     Active Substance: SACITUZUMAB GOVITECAN-HZIY
     Dosage: 6.5 MG/KG
     Route: 042
     Dates: end: 20220802
  10. SACITUZUMAB GOVITECAN-HZIY [Suspect]
     Active Substance: SACITUZUMAB GOVITECAN-HZIY
     Dosage: 6.5 MG/KG
     Route: 042
     Dates: start: 20220207

REACTIONS (2)
  - Febrile bone marrow aplasia [Recovered/Resolved]
  - Off label use [Unknown]

NARRATIVE: CASE EVENT DATE: 20211213
